FAERS Safety Report 11367262 (Version 1)
Quarter: 2015Q3

REPORT INFORMATION
  Report Type: Spontaneous
  Country: US (occurrence: US)
  Receive Date: 20150811
  Receipt Date: 20150811
  Transmission Date: 20151125
  Serious: No
  Sender: FDA-Public Use
  Company Number: US-ELI_LILLY_AND_COMPANY-US201202001062

PATIENT
  Age: 62 Year
  Sex: Male

DRUGS (2)
  1. IBUPROFEN. [Concomitant]
     Active Substance: IBUPROFEN
     Indication: INFLAMMATION
  2. AXIRON [Suspect]
     Active Substance: TESTOSTERONE
     Indication: BLOOD TESTOSTERONE DECREASED
     Dosage: 60 MG, UNK

REACTIONS (4)
  - Nausea [Unknown]
  - Drug dose omission [Recovered/Resolved]
  - Feeling hot [Unknown]
  - Insomnia [Unknown]

NARRATIVE: CASE EVENT DATE: 20120122
